FAERS Safety Report 9680828 (Version 2)
Quarter: 2013Q4

REPORT INFORMATION
  Report Type: Report from Study
  Country: IL (occurrence: IL)
  Receive Date: 20131111
  Receipt Date: 20131118
  Transmission Date: 20140711
  Serious: Yes (Life-Threatening)
  Sender: FDA-Public Use
  Company Number: PHHY2013IL127600

PATIENT
  Age: 25 Year
  Sex: Male

DRUGS (4)
  1. GILENYA [Suspect]
     Indication: MULTIPLE SCLEROSIS
     Dosage: 0.5 MG, QD
     Route: 048
     Dates: start: 20120503
  2. DEXAMOL [Suspect]
  3. CANNABIS [Concomitant]
  4. BACLOSAL [Concomitant]

REACTIONS (7)
  - Suicide attempt [Unknown]
  - Head discomfort [Unknown]
  - Vomiting [Unknown]
  - Feeling abnormal [Unknown]
  - Decreased appetite [Unknown]
  - Dizziness [Unknown]
  - Intentional overdose [Unknown]
